FAERS Safety Report 4626051-X (Version None)
Quarter: 2005Q2

REPORT INFORMATION
  Report Type: 
  Country: None (occurrence: None)
  Receive Date: 20050404
  Receipt Date: 20050210
  Transmission Date: 20051028
  Serious: Yes (Life-Threatening, Hospitalization, Disabling, Other)
  Sender: FDA-Public Use
  Company Number: GB-MERCK-0502GBR00113

PATIENT
  Age: 51 Year
  Sex: Female
  Weight: 85 kg

DRUGS (5)
  1. SINGULAIR [Suspect]
     Indication: ASTHMA
     Route: 048
     Dates: start: 20041208, end: 20050104
  2. PHENYTOIN [Suspect]
     Indication: EPILEPSY
     Route: 048
     Dates: start: 20010101
  3. VALPROATE SODIUM AND VALPROIC ACID [Suspect]
     Indication: EPILEPSY
     Route: 048
     Dates: start: 20041104
  4. PERINDOPRIL [Concomitant]
     Route: 048
     Dates: start: 20020315
  5. BENDROFLUMETHIAZIDE [Concomitant]
     Route: 048
     Dates: start: 20030131

REACTIONS (2)
  - DRUG INTERACTION [None]
  - EPILEPSY [None]
